FAERS Safety Report 25827234 (Version 1)
Quarter: 2025Q3

REPORT INFORMATION
  Report Type: Spontaneous
  Country: EU (occurrence: EU)
  Receive Date: 20250920
  Receipt Date: 20250920
  Transmission Date: 20251020
  Serious: Yes (Hospitalization, Other)
  Sender: NOVARTIS
  Company Number: EU-002147023-NVSC2025FR143441

PATIENT
  Age: 55 Year
  Sex: Male

DRUGS (2)
  1. TRILEPTAL [Suspect]
     Active Substance: OXCARBAZEPINE
     Indication: Epilepsy
     Dosage: 300 MG, BID (ONE TABLET IN THE MORNING AND ONE IN THE EVENING) (AROUND 2003 TO 2004)
     Route: 065
  2. CLOBAZAM [Concomitant]
     Active Substance: CLOBAZAM
     Indication: Product used for unknown indication
     Route: 065

REACTIONS (12)
  - Seizure [Unknown]
  - Myalgia [Unknown]
  - Suicidal ideation [Unknown]
  - Bone disorder [Unknown]
  - Tendon pain [Unknown]
  - Contusion [Unknown]
  - Dysphemia [Unknown]
  - Neck mass [Unknown]
  - Weight increased [Unknown]
  - Dyspepsia [Unknown]
  - Abdominal distension [Unknown]
  - Head injury [Unknown]
